FAERS Safety Report 8858906 (Version 8)
Quarter: 2013Q2

REPORT INFORMATION
  Report Type: Spontaneous
  Country: US (occurrence: US)
  Receive Date: 20121024
  Receipt Date: 20130402
  Transmission Date: 20140414
  Serious: Yes (Hospitalization, Other)
  Sender: FDA-Public Use
  Company Number: US-009507513-1203USA02829

PATIENT
  Sex: Female
  Weight: 64.85 kg

DRUGS (7)
  1. FOSAMAX [Suspect]
     Indication: OSTEOPOROSIS
     Dosage: UNK
     Route: 048
     Dates: start: 200312, end: 20100326
  2. FOSAMAX [Suspect]
     Dosage: 10 MG, UNK
     Route: 048
     Dates: start: 20031203, end: 20041014
  3. FOSAMAX [Suspect]
     Indication: OSTEOPOROSIS
     Route: 048
     Dates: start: 200312, end: 200911
  4. FOSAMAX [Suspect]
     Indication: OSTEOPENIA
  5. BONIVA [Suspect]
     Indication: OSTEOPOROSIS
     Dates: start: 200312, end: 200911
  6. ALENDRONATE SODIUM [Suspect]
     Dosage: 70 MG, UNK
     Route: 048
     Dates: start: 20090912, end: 20091117
  7. FOSAMAX [Suspect]
     Indication: OSTEOPOROSIS
     Dosage: UNK
     Route: 048
     Dates: start: 200911

REACTIONS (36)
  - Open reduction of fracture [Unknown]
  - Post procedural haemorrhage [Unknown]
  - Escherichia urinary tract infection [Unknown]
  - Cardiac pacemaker insertion [Unknown]
  - Cholecystectomy [Unknown]
  - Plasma cell myeloma [Unknown]
  - Neoplasm malignant [Unknown]
  - Pulmonary fibrosis [Unknown]
  - Atelectasis [Unknown]
  - Femur fracture [Unknown]
  - Low turnover osteopathy [Unknown]
  - Hypertension [Unknown]
  - Hypothyroidism [Unknown]
  - Fall [Unknown]
  - Impaired healing [Unknown]
  - Spinal compression fracture [Not Recovered/Not Resolved]
  - Osteoarthritis [Unknown]
  - Kyphosis [Unknown]
  - Eating disorder [Unknown]
  - Weight decreased [Unknown]
  - Cataract operation [Unknown]
  - Osteomalacia [Unknown]
  - Weight decreased [Unknown]
  - Fall [Unknown]
  - Bone scan abnormal [Unknown]
  - Spinal deformity [Unknown]
  - Rib fracture [Unknown]
  - Spinal compression fracture [Not Recovered/Not Resolved]
  - Aortic disorder [Unknown]
  - Aortic arteriosclerosis [Unknown]
  - Intervertebral disc degeneration [Unknown]
  - Scoliosis [Unknown]
  - Corneal transplant [Unknown]
  - Gastrooesophageal reflux disease [Unknown]
  - Nausea [Unknown]
  - Diarrhoea [Not Recovered/Not Resolved]
